FAERS Safety Report 9255003 (Version 4)
Quarter: 2014Q3

REPORT INFORMATION
  Report Type: Spontaneous
  Country: US (occurrence: US)
  Receive Date: 20130425
  Receipt Date: 20140828
  Transmission Date: 20150326
  Serious: Yes (Disabling, Other)
  Sender: FDA-Public Use
  Company Number: US-ASTRAZENECA-2013SE27469

PATIENT
  Age: 54 Year
  Sex: Female

DRUGS (41)
  1. ROLAIDS OTC [Concomitant]
     Indication: DYSPEPSIA
     Dosage: 750 MG AS NEEDED
  2. MULTIVITAMIN [Concomitant]
     Active Substance: VITAMINS
     Dosage: DAILY
  3. VYVANSE [Concomitant]
     Active Substance: LISDEXAMFETAMINE DIMESYLATE
     Dates: start: 20100422
  4. ZOLPIDEM TARTARATE [Concomitant]
     Dates: start: 20090120
  5. GABAPENTIN. [Concomitant]
     Active Substance: GABAPENTIN
     Dates: start: 20091007
  6. PREDNISONE. [Concomitant]
     Active Substance: PREDNISONE
     Dates: start: 20140107
  7. OMEPRAZOLE. [Suspect]
     Active Substance: OMEPRAZOLE
     Indication: GASTROOESOPHAGEAL REFLUX DISEASE
     Route: 048
  8. OMEPRAZOLE. [Suspect]
     Active Substance: OMEPRAZOLE
     Indication: HIATUS HERNIA
     Route: 048
  9. MEDROXYPROGESTERONE [Concomitant]
     Active Substance: MEDROXYPROGESTERONE
     Dates: start: 20031105
  10. XENICAL [Concomitant]
     Active Substance: ORLISTAT
  11. TUMS [Concomitant]
     Active Substance: CALCIUM CARBONATE
  12. ALPRAZOLAM. [Concomitant]
     Active Substance: ALPRAZOLAM
     Indication: INSOMNIA
  13. MELOXICAM. [Concomitant]
     Active Substance: MELOXICAM
     Indication: OSTEOARTHRITIS
  14. PRISTIQ EXTENDED RELEASE [Concomitant]
     Active Substance: DESVENLAFAXINE SUCCINATE
     Dates: start: 20080820
  15. AMITRIPTYLINE [Concomitant]
     Active Substance: AMITRIPTYLINE
     Dates: start: 20091203
  16. NEXIUM [Suspect]
     Active Substance: ESOMEPRAZOLE MAGNESIUM
     Indication: GASTROOESOPHAGEAL REFLUX DISEASE
     Route: 048
     Dates: start: 20031113
  17. ROLAIDS OTC [Concomitant]
     Indication: DERMATITIS
     Dosage: 750 MG AS NEEDED
  18. NAPROXEN. [Concomitant]
     Active Substance: NAPROXEN
     Dates: start: 20060622
  19. AMITIZA [Concomitant]
     Active Substance: LUBIPROSTONE
     Dates: start: 20080609
  20. TRAMADOL [Concomitant]
     Active Substance: TRAMADOL
     Dates: start: 20140102
  21. NEXIUM [Suspect]
     Active Substance: ESOMEPRAZOLE MAGNESIUM
     Indication: GASTROOESOPHAGEAL REFLUX DISEASE
     Route: 048
     Dates: start: 1998, end: 201107
  22. OMEPRAZOLE. [Suspect]
     Active Substance: OMEPRAZOLE
     Indication: HIATUS HERNIA
     Route: 048
     Dates: start: 20100304
  23. PREMARIN [Concomitant]
     Active Substance: ESTROGENS, CONJUGATED
     Indication: HORMONE REPLACEMENT THERAPY
  24. DIAZEPAM. [Concomitant]
     Active Substance: DIAZEPAM
     Dates: start: 20100115
  25. CEFUROXIME AXETIL. [Concomitant]
     Active Substance: CEFUROXIME AXETIL
     Dates: start: 20100311
  26. SPORANOX [Concomitant]
     Active Substance: ITRACONAZOLE\SODIUM CHLORIDE
     Dates: start: 20050429
  27. CLINDAMYCIN [Concomitant]
     Active Substance: CLINDAMYCIN\CLINDAMYCIN PHOSPHATE
     Dates: start: 20050919
  28. FUROSEMIDE. [Concomitant]
     Active Substance: FUROSEMIDE
     Dates: start: 20080731
  29. ROLAIDS OTC [Concomitant]
     Indication: GASTROOESOPHAGEAL REFLUX DISEASE
     Dosage: 750 MG AS NEEDED
  30. ROLAIDS OTC [Concomitant]
     Indication: HIATUS HERNIA
     Dosage: 750 MG AS NEEDED
  31. CELEBREX [Concomitant]
     Active Substance: CELECOXIB
     Dates: start: 20031126
  32. LEXAPRO [Concomitant]
     Active Substance: ESCITALOPRAM OXALATE
     Dates: start: 20100115
  33. IBUPROFEN. [Concomitant]
     Active Substance: IBUPROFEN
     Dates: start: 20061122
  34. LUNESTA [Concomitant]
     Active Substance: ESZOPICLONE
     Dates: start: 20070607
  35. ETODOLAC. [Concomitant]
     Active Substance: ETODOLAC
     Dates: start: 20091119
  36. ASPIRIN. [Concomitant]
     Active Substance: ASPIRIN
     Dates: start: 201008
  37. PRAVASTATIN SODIUM. [Concomitant]
     Active Substance: PRAVASTATIN SODIUM
     Indication: BLOOD CHOLESTEROL ABNORMAL
  38. TEMAZEPAM. [Concomitant]
     Active Substance: TEMAZEPAM
     Dates: start: 20031105
  39. OMEPRAZOLE. [Suspect]
     Active Substance: OMEPRAZOLE
     Indication: GASTROOESOPHAGEAL REFLUX DISEASE
     Route: 048
     Dates: start: 20100304
  40. EFFEXOR XR [Concomitant]
     Active Substance: VENLAFAXINE HYDROCHLORIDE
     Dates: start: 20031113
  41. LORAZEPAM. [Concomitant]
     Active Substance: LORAZEPAM
     Dates: start: 20090420

REACTIONS (14)
  - Bone disorder [Unknown]
  - Depression [Unknown]
  - Ligament sprain [Unknown]
  - Back disorder [Unknown]
  - Chest injury [Unknown]
  - Osteoporosis [Unknown]
  - Rib fracture [Unknown]
  - Limb discomfort [Unknown]
  - Anxiety [Unknown]
  - Intervertebral disc protrusion [Unknown]
  - Osteopenia [Unknown]
  - Foot fracture [Unknown]
  - Arthropathy [Unknown]
  - Rheumatoid arthritis [Unknown]

NARRATIVE: CASE EVENT DATE: 200808
